FAERS Safety Report 5637703-7 (Version None)
Quarter: 2008Q1

REPORT INFORMATION
  Report Type: 
  Country: None (occurrence: None)
  Receive Date: 20080225
  Receipt Date: 20080109
  Transmission Date: 20080703
  Serious: Yes (Death, Hospitalization)
  Sender: FDA-Public Use
  Company Number: US-GILEAD-2008-0014898

PATIENT
  Sex: Female

DRUGS (2)
  1. LETAIRIS [Suspect]
     Dates: start: 20070601
  2. REVATIO [Concomitant]

REACTIONS (3)
  - HYPOXIA [None]
  - PNEUMONIA [None]
  - RENAL FAILURE [None]
